FAERS Safety Report 7198626-8 (Version None)
Quarter: 2010Q4

REPORT INFORMATION
  Report Type: 
  Country: None (occurrence: None)
  Receive Date: 20101227
  Receipt Date: 20100209
  Transmission Date: 20110411
  Serious: No
  Sender: FDA-Public Use
  Company Number: US-ABBOTT-10P-163-0625713-00

PATIENT
  Sex: Male
  Weight: 69.916 kg

DRUGS (4)
  1. LUPRON DEPOT [Suspect]
     Indication: PROSTATE CANCER
     Route: 030
     Dates: start: 20100125
  2. BONIVA [Concomitant]
     Indication: OSTEOPOROSIS
  3. CRESTOR [Concomitant]
     Indication: BLOOD CHOLESTEROL INCREASED
  4. NORVASC [Concomitant]
     Indication: HYPERTENSION

REACTIONS (3)
  - INJECTION SITE DISCOMFORT [None]
  - MUSCULOSKELETAL PAIN [None]
  - PAIN IN EXTREMITY [None]
